FAERS Safety Report 16800675 (Version 1)
Quarter: 2019Q3

REPORT INFORMATION
  Report Type: Spontaneous
  Country: US (occurrence: US)
  Receive Date: 20190912
  Receipt Date: 20190912
  Transmission Date: 20191005
  Serious: No
  Sender: FDA-Public Use
  Company Number: US-ASTELLAS-2018US054203

PATIENT
  Age: 79 Year
  Sex: Male

DRUGS (1)
  1. XTANDI [Suspect]
     Active Substance: ENZALUTAMIDE
     Indication: PRODUCT USED FOR UNKNOWN INDICATION
     Route: 065
     Dates: start: 201809

REACTIONS (5)
  - Fatigue [Unknown]
  - Decreased appetite [Unknown]
  - Lethargy [Unknown]
  - Nausea [Unknown]
  - Circumstance or information capable of leading to medication error [Unknown]
